FAERS Safety Report 15302628 (Version 1)
Quarter: 2018Q3

REPORT INFORMATION
  Report Type: Spontaneous
  Country: US (occurrence: US)
  Receive Date: 20180821
  Receipt Date: 20180821
  Transmission Date: 20181010
  Serious: No
  Sender: FDA-Public Use
  Company Number: US-SA-2018SA228655

PATIENT
  Age: 15 Year
  Sex: Male
  Weight: 56.6 kg

DRUGS (8)
  1. FABRAZYME [Suspect]
     Active Substance: AGALSIDASE BETA
     Indication: FABRY^S DISEASE
     Dosage: 1.06 MG/KG, QOW
     Route: 041
  2. ACETAMINOPHEN. [Concomitant]
     Active Substance: ACETAMINOPHEN
     Indication: PREMEDICATION
     Dosage: 500 MG, QD
     Route: 048
     Dates: start: 20180519
  3. LIDOCAINE/PRILOCAINE [Concomitant]
     Active Substance: LIDOCAINE\PRILOCAINE
     Indication: PREMEDICATION
     Dosage: 2.5 %, QD
     Route: 061
     Dates: start: 20180519
  4. EPINEPHRINE. [Concomitant]
     Active Substance: EPINEPHRINE
     Indication: ANAPHYLACTIC REACTION
     Dosage: 0.3 MG, PRN
     Route: 030
     Dates: start: 20180519
  5. DIPHENHYDRAMINE. [Concomitant]
     Active Substance: DIPHENHYDRAMINE
     Indication: ANAPHYLACTIC REACTION
  6. NORMAL SALINE [Concomitant]
     Active Substance: SODIUM CHLORIDE
     Dosage: 0.9 %
     Route: 041
     Dates: start: 20180519
  7. LMX [LIDOCAINE] [Concomitant]
     Indication: PREMEDICATION
     Dosage: 4 %
     Route: 061
     Dates: start: 20180519
  8. DIPHENHYDRAMINE. [Concomitant]
     Active Substance: DIPHENHYDRAMINE
     Indication: PREMEDICATION
     Dosage: 25 MG, PRN
     Route: 048
     Dates: start: 20180519

REACTIONS (8)
  - Arthralgia [Unknown]
  - Pain in extremity [Unknown]
  - Somnolence [Unknown]
  - Body temperature increased [Unknown]
  - Fatigue [Unknown]
  - Feeling cold [Unknown]
  - Influenza like illness [Unknown]
  - Chills [Unknown]

NARRATIVE: CASE EVENT DATE: 20180811
